FAERS Safety Report 17353661 (Version 2)
Quarter: 2020Q1

REPORT INFORMATION
  Report Type: Report from Study
  Country: DE (occurrence: DE)
  Receive Date: 20200131
  Receipt Date: 20200205
  Transmission Date: 20200409
  Serious: Yes (Hospitalization)
  Sender: FDA-Public Use
  Company Number: DE-MYLANLABS-2020M1008397

PATIENT
  Sex: Male
  Weight: 36 kg

DRUGS (8)
  1. METHOTREXATE. [Suspect]
     Active Substance: METHOTREXATE
     Indication: JUVENILE IDIOPATHIC ARTHRITIS
     Dosage: 12.5 MILLIGRAM, QW
     Route: 048
     Dates: start: 20100419
  2. HUMIRA [Suspect]
     Active Substance: ADALIMUMAB
     Dosage: UNK
     Route: 058
  3. AVASTIN                            /00848101/ [Suspect]
     Active Substance: SIMVASTATIN
     Indication: UVEITIS
     Dosage: UNK
  4. HUMIRA [Suspect]
     Active Substance: ADALIMUMAB
     Indication: JUVENILE IDIOPATHIC ARTHRITIS
     Dosage: 20 MILLIGRAM, Q2W
     Route: 058
     Dates: start: 20140909, end: 20170322
  5. CORTISONE [Suspect]
     Active Substance: CORTISONE
     Indication: JUVENILE IDIOPATHIC ARTHRITIS
     Dosage: UNK
  6. CORTISONE [Suspect]
     Active Substance: CORTISONE
     Indication: UVEITIS
     Dosage: 750 MILLIGRAM, QD
     Route: 065
     Dates: start: 201703, end: 201703
  7. AVASTIN                            /00848101/ [Suspect]
     Active Substance: SIMVASTATIN
     Indication: ISCHAEMIA
     Dosage: UNK
     Route: 065
     Dates: start: 201703, end: 201703
  8. TOCILIZUMAB. [Concomitant]
     Active Substance: TOCILIZUMAB
     Indication: PRODUCT USED FOR UNKNOWN INDICATION
     Dosage: 260 MILLIGRAM, MONTHLY
     Dates: start: 20170410

REACTIONS (3)
  - Psoriasis [Not Recovered/Not Resolved]
  - Ischaemia [Recovered/Resolved]
  - Iridocyclitis [Not Recovered/Not Resolved]

NARRATIVE: CASE EVENT DATE: 20170910
